FAERS Safety Report 7887845-0 (Version None)
Quarter: 2011Q4

REPORT INFORMATION
  Report Type: 
  Country: None (occurrence: None)
  Receive Date: 20111103
  Receipt Date: 20111021
  Transmission Date: 20120403
  Serious: Yes (Death, Hospitalization, Other)
  Sender: FDA-Public Use
  Company Number: GB-RANBAXY-2011R1-48662

PATIENT
  Sex: Female

DRUGS (7)
  1. ACETAMINOPHEN [Interacting]
     Indication: PROCEDURAL PAIN
     Dosage: UNK
     Route: 065
  2. FLOXACILLIN SODIUM [Interacting]
     Indication: STAPHYLOCOCCAL INFECTION
     Dosage: 2 G, QID
     Route: 042
  3. FLOXACILLIN SODIUM [Interacting]
  4. CEFUROXIME [Concomitant]
     Indication: PRODUCT USED FOR UNKNOWN INDICATION
     Dosage: UNK
     Route: 042
  5. ACETAMINOPHEN [Interacting]
     Indication: WOUND COMPLICATION
  6. ACETAMINOPHEN [Suspect]
     Indication: ARTHRALGIA
     Dosage: 1000 MG, QID
     Route: 048
  7. FLOXACILLIN SODIUM [Interacting]
     Indication: SEPSIS
     Dosage: 1 G, QID
     Route: 065

REACTIONS (8)
  - HYPOKALAEMIA [None]
  - ARTHRITIS INFECTIVE [None]
  - DRUG INTERACTION [None]
  - METABOLIC ACIDOSIS [None]
  - STAPHYLOCOCCAL SEPSIS [None]
  - ENTEROCOCCAL INFECTION [None]
  - RENAL IMPAIRMENT [None]
  - PYROGLUTAMATE INCREASED [None]
